FAERS Safety Report 17070360 (Version 2)
Quarter: 2021Q2

REPORT INFORMATION
  Report Type: Spontaneous
  Country: US (occurrence: US)
  Receive Date: 20191125
  Receipt Date: 20210427
  Transmission Date: 20210716
  Serious: Yes (Hospitalization, Other)
  Sender: FDA-Public Use
  Company Number: US-TEVA-2019-US-1139825

PATIENT
  Age: 55 Year
  Sex: Female

DRUGS (37)
  1. VALSARTAN. [Suspect]
     Active Substance: VALSARTAN
     Indication: HYPERTENSION
     Route: 065
  2. VALSARTAN /HYDROCHLOROTHIAZIDE?TEVA [Suspect]
     Active Substance: HYDROCHLOROTHIAZIDE\VALSARTAN
     Dosage: 320/25 MG
     Route: 065
     Dates: start: 20130605, end: 20141217
  3. ALDACTONE [Concomitant]
     Active Substance: SPIRONOLACTONE
     Indication: OEDEMA
     Dosage: 25 MILLIGRAM DAILY;
     Route: 048
     Dates: start: 20160802, end: 20161025
  4. NIFEDIPINE. [Concomitant]
     Active Substance: NIFEDIPINE
     Dosage: 60 MILLIGRAM DAILY; 60 MG DAILY PO
     Route: 048
  5. TOPAMAX [Concomitant]
     Active Substance: TOPIRAMATE
     Route: 065
     Dates: start: 20160516, end: 20161004
  6. LASIX [Concomitant]
     Active Substance: FUROSEMIDE
     Dosage: 10 MG BY MOUTH DAILY
     Route: 048
     Dates: start: 20160802, end: 20161124
  7. GLUCOPHAGE [Concomitant]
     Active Substance: METFORMIN HYDROCHLORIDE
     Dosage: 2000 MILLIGRAM DAILY; 1 TAB BY MOUTH BID WITH MEALS
     Route: 048
     Dates: start: 20160802, end: 20161025
  8. FISH OIL [Concomitant]
     Active Substance: FISH OIL
     Indication: NUTRITIONAL SUPPLEMENTATION
     Dosage: 1000 MILLIGRAM DAILY; 1 CAP BY MOUTH DAILY BEFORE BREAKFAST
     Route: 048
  9. CALCIUM/VITAMIN D [Concomitant]
     Active Substance: CALCIUM\VITAMIN D
     Indication: NUTRITIONAL SUPPLEMENTATION
     Dosage: 600?125 MG TABLET DAILY
     Route: 065
  10. VITAMIN D3 [Concomitant]
     Active Substance: CHOLECALCIFEROL
     Indication: NUTRITIONAL SUPPLEMENTATION
     Dosage: 1000 MILLIGRAM DAILY; 1000 MG CAPSULE DAILY
     Route: 065
  11. LIDEX [Concomitant]
     Active Substance: FLUOCINONIDE
     Dosage: TOPICAL CREAM 1 APPLICATION BID (PATIENT TAKING DIFFERENTLY: DAILY AS NEEDED. 1 APPLICATION BID
     Route: 061
     Dates: start: 20150313, end: 20180316
  12. ASPIRIN. [Concomitant]
     Active Substance: ASPIRIN
     Dosage: 1 TAB BY MOUTH DAILY, LONG TERM (CURRENT) USE , DELAYED RELEASE
     Route: 048
     Dates: start: 20110714, end: 20180329
  13. COLACE [Concomitant]
     Active Substance: DOCUSATE SODIUM
     Route: 065
  14. APRESOLINE HYDROCHLORIDE [Concomitant]
     Active Substance: HYDRALAZINE HYDROCHLORIDE
     Dosage: 200 MILLIGRAM DAILY; 1 TAB BY MOUTH 2 TIMES A DAY
     Route: 048
     Dates: start: 20150403, end: 20161004
  15. VALSARTAN /HYDROCHLOROTHIAZIDE?TEVA [Suspect]
     Active Substance: HYDROCHLOROTHIAZIDE\VALSARTAN
     Indication: HYPERTENSION
     Dosage: 320/12.5 MG
     Route: 065
     Dates: start: 20121011, end: 20130604
  16. INSULIN HUMAN REGULAR [Concomitant]
     Active Substance: INSULIN HUMAN
     Dosage: NORMAL SENSITIVITY INSULIN
     Route: 065
  17. CLONIDINE HCL [Concomitant]
     Active Substance: CLONIDINE HYDROCHLORIDE
     Indication: HYPERTENSION
     Dosage: .4 MILLIGRAM DAILY; 0.1 MG Q6HR PRN PO
     Route: 048
  18. ALDACTONE [Concomitant]
     Active Substance: SPIRONOLACTONE
     Indication: HYPERTENSION
     Dosage: 50 MILLIGRAM DAILY; 1 TAB BY MOUTH DAILY
     Route: 048
     Dates: start: 20160429, end: 20161004
  19. CEFAZOLIN SODIUM. [Concomitant]
     Active Substance: CEFAZOLIN SODIUM
     Dosage: 3 GRAM DAILY; 1 GM Q8H IV
     Route: 042
  20. FAMOTIDINE. [Concomitant]
     Active Substance: FAMOTIDINE
     Dosage: 40 MILLIGRAM DAILY; 20 MG Q12H IV
     Route: 042
  21. VALSARTAN /HYDROCHLOROTHIAZIDE?AUROBINDO [Suspect]
     Active Substance: HYDROCHLOROTHIAZIDE\VALSARTAN
     Indication: HYPERTENSION
     Dosage: 320/25 MG
     Route: 065
     Dates: start: 20150108, end: 20170727
  22. TRULICITY [Concomitant]
     Active Substance: DULAGLUTIDE
     Dosage: 0.75 MG/0.5 ML SUBCUTANEOUS PEN INJECTOR, Q7D
     Route: 058
     Dates: start: 20160429, end: 20170407
  23. TOPROL XL [Concomitant]
     Active Substance: METOPROLOL SUCCINATE
     Dosage: 200 MILLIGRAM DAILY; 100 MG BID PO
     Route: 048
     Dates: start: 20160907, end: 20161004
  24. HUMALOG [Concomitant]
     Active Substance: INSULIN LISPRO
     Indication: DIABETES MELLITUS
     Dosage: 100 UNIT/ML INJECTION BY SC ROUTE DAILY AS NEEDED. SLIDING SCALE.
     Route: 058
  25. FARXIGA [Concomitant]
     Active Substance: DAPAGLIFLOZIN PROPANEDIOL
     Indication: TYPE 2 DIABETES MELLITUS
     Route: 065
  26. CATAPRES?TTS [Concomitant]
     Active Substance: CLONIDINE
     Indication: HYPERTENSION
     Dosage: 0.3 MG/24 HOUR 1 PATCH BY TRANSDERMAL ROUTE EVERY SEVEN DAYS
     Route: 062
  27. NORVASC [Concomitant]
     Active Substance: AMLODIPINE BESYLATE
     Dosage: 5 MILLIGRAM DAILY;
     Route: 048
  28. HUMULIN N [Concomitant]
     Active Substance: INSULIN HUMAN
     Dosage: 100 UNIT/ML INJECTION, INJECT 30 UNITS IN AM AND 30 UNITS IN PM
     Route: 058
     Dates: start: 20160429, end: 20161026
  29. HUMULIN N [Concomitant]
     Active Substance: INSULIN HUMAN
     Dosage: 20 UNITS SUBCUTANEOUS BEFORE BREAKFAST AND DINNER
     Route: 058
  30. HYDROCHLOROTHIAZIDE. [Concomitant]
     Active Substance: HYDROCHLOROTHIAZIDE
     Dosage: 25 MILLIGRAM DAILY; 25 MG, DAILY
     Route: 048
  31. LOPRESSOR [Concomitant]
     Active Substance: METOPROLOL TARTRATE
     Dosage: 200 MILLIGRAM DAILY; TAKE 100 MG BY MOUTH TWO TIMES A DAY ORAL, IMMEDIATE?RELEASE TABLET
     Route: 048
     Dates: end: 20161215
  32. ZOCOR [Concomitant]
     Active Substance: SIMVASTATIN
     Indication: BLOOD CHOLESTEROL INCREASED
     Dosage: 20 MILLIGRAM DAILY; 20 MILLIGRAM ORAL EVERY DAY AT BEDTIME
     Route: 048
     Dates: start: 20160705, end: 20161123
  33. PROCARDIA [Concomitant]
     Active Substance: NIFEDIPINE
  34. ONDANSETRON HCI [Concomitant]
     Active Substance: ONDANSETRON HYDROCHLORIDE
     Dosage: 16 MILLIGRAM DAILY; 4 MG Q6HR PRN IV
     Route: 042
  35. PROMETHAZINE HCI [Concomitant]
     Dosage: 50 MILLIGRAM DAILY; 12.5 MG Q6HR PRN IV
     Route: 042
  36. GLUCOPHAGE [Concomitant]
     Active Substance: METFORMIN HYDROCHLORIDE
     Dosage: .1071 MILLIGRAM DAILY; 0.75 MILLIGRAM SUBCUTANEOUS Q7D, STOPPED MEDICATION
     Route: 058
  37. ASPIRIN. [Concomitant]
     Active Substance: ASPIRIN
     Dosage: 20 MILLIGRAM ORAL EVERY DAY AT BEDTIME
     Route: 048

REACTIONS (2)
  - Chronic kidney disease [Recovered/Resolved]
  - Renal cancer [Recovered/Resolved]

NARRATIVE: CASE EVENT DATE: 20170717
